FAERS Safety Report 4370299-9 (Version None)
Quarter: 2004Q2

REPORT INFORMATION
  Report Type: 
  Country: None (occurrence: None)
  Receive Date: 20040603
  Receipt Date: 20040304
  Transmission Date: 20050107
  Serious: Yes (Hospitalization, Other)
  Sender: FDA-Public Use
  Company Number: US-BRISTOL-MYERS SQUIBB COMPANY-12524757

PATIENT
  Age: 11 Year
  Sex: Male
  Weight: 48 kg

DRUGS (5)
  1. ABILIFY [Suspect]
     Indication: SCHIZOPHRENIA, PARANOID TYPE
     Route: 048
     Dates: start: 20031001
  2. PROZAC [Suspect]
     Dosage: INCREASED TO 20 MG/DAY IN JAN-2004
     Route: 048
  3. SEROQUEL [Concomitant]
     Route: 048
  4. DEPAKOTE [Concomitant]
     Dosage: INCREASED TO 1000 MG/DAY IN FEB-2004
     Route: 048
  5. ZYPREXA [Concomitant]

REACTIONS (6)
  - ABNORMAL BEHAVIOUR [None]
  - AGGRESSION [None]
  - DYSTONIA [None]
  - EXTRAPYRAMIDAL DISORDER [None]
  - HALLUCINATION [None]
  - IRRITABILITY [None]
